FAERS Safety Report 6423546-3 (Version None)
Quarter: 2009Q4

REPORT INFORMATION
  Report Type: 
  Country: None (occurrence: None)
  Receive Date: 20091102
  Receipt Date: 20090623
  Transmission Date: 20100525
  Serious: No
  Sender: FDA-Public Use
  Company Number: A0794119A

PATIENT
  Sex: Female

DRUGS (2)
  1. RHYTHMOL [Suspect]
     Indication: DRUG USE FOR UNKNOWN INDICATION
     Route: 048
  2. BETA AGONISTS [Suspect]
     Indication: ASTHMA

REACTIONS (1)
  - VENTRICULAR EXTRASYSTOLES [None]
